FAERS Safety Report 4306602-5 (Version None)
Quarter: 2004Q1

REPORT INFORMATION
  Report Type: 
  Country: None (occurrence: None)
  Receive Date: 20040225
  Receipt Date: 20031006
  Transmission Date: 20041129
  Serious: Yes (Other)
  Sender: FDA-Public Use
  Company Number: US-BRISTOL-MYERS SQUIBB COMPANY-12403937

PATIENT

DRUGS (1)
  1. EXCEDRIN [Suspect]
     Dosage: DURATION: ^SEVERAL YEARS^
     Route: 048

REACTIONS (2)
  - DEAFNESS [None]
  - TINNITUS [None]
